FAERS Safety Report 10128091 (Version 2)
Quarter: 2014Q2

REPORT INFORMATION
  Report Type: Spontaneous
  Country: CH (occurrence: CH)
  Receive Date: 20140428
  Receipt Date: 20140429
  Transmission Date: 20141212
  Serious: Yes (Other)
  Sender: FDA-Public Use
  Company Number: CH-ROCHE-1388383

PATIENT
  Age: 49 Year
  Sex: Male

DRUGS (4)
  1. MABTHERA [Suspect]
     Indication: IMMUNE-MEDIATED NECROTISING MYOPATHY
     Route: 042
     Dates: start: 201304
  2. SANDIMMUN [Concomitant]
     Indication: IMMUNE-MEDIATED NECROTISING MYOPATHY
     Route: 065
  3. METHOTREXATE [Concomitant]
     Indication: IMMUNE-MEDIATED NECROTISING MYOPATHY
     Route: 065
  4. PREDNISONE [Concomitant]
     Indication: IMMUNE-MEDIATED NECROTISING MYOPATHY
     Route: 065

REACTIONS (2)
  - Disease progression [Not Recovered/Not Resolved]
  - Renal injury [Not Recovered/Not Resolved]
